FAERS Safety Report 5203480-7 (Version None)
Quarter: 2007Q1

REPORT INFORMATION
  Report Type: 
  Country: None (occurrence: None)
  Receive Date: 20070105
  Receipt Date: 20061227
  Transmission Date: 20070707
  Serious: Yes (Death, Hospitalization)
  Sender: FDA-Public Use
  Company Number: 2006-03310

PATIENT
  Age: 75 Year
  Sex: Male
  Weight: 65 kg

DRUGS (9)
  1. VELCADE [Suspect]
     Indication: MULTIPLE MYELOMA
     Dosage: 3.50 MG UNK
     Dates: start: 20060508, end: 20060831
  2. UNIKET (ISOSORBIDE MONONITRATE) [Concomitant]
  3. NORVASC [Concomitant]
  4. PAROXETINE [Concomitant]
  5. OMEPRAZOLE [Concomitant]
  6. SUMIAL (PROPRANOLOL HYDROCHLORIDE) [Concomitant]
  7. ALOPURINOL (ALLOPURINOL) [Concomitant]
  8. NEURONTIN [Concomitant]
  9. ACETYLSALICYLIC ACID SRT [Concomitant]

REACTIONS (4)
  - ASTHENIA [None]
  - DYSPNOEA [None]
  - NEUROPATHY PERIPHERAL [None]
  - SPONTANEOUS HAEMATOMA [None]
